FAERS Safety Report 5376251-9 (Version None)
Quarter: 2007Q3

REPORT INFORMATION
  Report Type: 
  Country: None (occurrence: None)
  Receive Date: 20070702
  Receipt Date: 20070622
  Transmission Date: 20080115
  Serious: Yes (Other)
  Sender: FDA-Public Use
  Company Number: DE-ROCHE-493495

PATIENT
  Age: 77 Year
  Sex: Female
  Weight: 118 kg

DRUGS (9)
  1. BONIVA [Suspect]
     Indication: OSTEOPOROSIS
     Route: 042
     Dates: start: 20070111, end: 20070111
  2. LORZAAR PLUS [Concomitant]
     Indication: HYPERTONIA
     Dosage: DOSE REPORTED AS 50/12.5.
     Dates: start: 20040101
  3. AMLODIPINE [Concomitant]
     Indication: HYPERTONIA
     Dates: start: 20040101
  4. METOPROLOL SUCCINATE [Concomitant]
     Indication: HYPERTONIA
  5. METFORMIN HCL [Concomitant]
     Dates: start: 20060101
  6. ISOSORBIDDINITRAT [Concomitant]
  7. OMEPRAZOLE [Concomitant]
     Indication: COLITIS
     Dates: start: 20050101
  8. TRAMADOL HCL [Concomitant]
     Dosage: DOSAGE REPORTED AS 100.
  9. LACTULOSE [Concomitant]

REACTIONS (4)
  - CONFUSIONAL STATE [None]
  - DEPRESSION [None]
  - DISORIENTATION [None]
  - HYPERSOMNIA [None]
